FAERS Safety Report 5827893-5 (Version None)
Quarter: 2008Q3

REPORT INFORMATION
  Report Type: 
  Country: None (occurrence: None)
  Receive Date: 20080730
  Receipt Date: 20080718
  Transmission Date: 20090109
  Serious: Yes (Other)
  Sender: FDA-Public Use
  Company Number: US-PFIZER INC-2008053074

PATIENT
  Sex: Female

DRUGS (5)
  1. LYRICA [Suspect]
     Indication: FIBROMYALGIA
     Route: 048
  2. LYRICA [Suspect]
     Indication: NEURALGIA
  3. LYRICA [Suspect]
     Indication: CONVULSION
  4. LYRICA [Suspect]
     Indication: POST HERPETIC NEURALGIA
  5. HYDROCHLOROTHIAZIDE [Suspect]

REACTIONS (1)
  - HYPOKALAEMIA [None]
